FAERS Safety Report 8891123 (Version 2)
Quarter: 2012Q4

REPORT INFORMATION
  Report Type: 
  Country: US (occurrence: US)
  Receive Date: 20121107
  Receipt Date: 20121119
  Transmission Date: 20130627
  Serious: Yes (Other)
  Sender: FDA-Public Use
  Company Number: US-PFIZER INC-2012274959

PATIENT
  Age: 61 Year
  Sex: Male
  Weight: 83.9 kg

DRUGS (14)
  1. CHANTIX [Suspect]
     Indication: SMOKING CESSATION THERAPY
     Dosage: UNK
     Route: 048
  2. CHANTIX [Interacting]
     Dosage: UNK
     Route: 048
     Dates: start: 2012, end: 2012
  3. CHANTIX [Interacting]
     Dosage: 1 mg, 2x/day
     Route: 048
     Dates: start: 2012, end: 20121103
  4. CHANTIX [Interacting]
     Dosage: UNK
     Dates: start: 2012, end: 2012
  5. LISINOPRIL [Interacting]
     Indication: BLOOD PRESSURE HIGH
     Dosage: 20 mg, daily
  6. MELOXICAM [Interacting]
     Indication: ARTHRITIS
     Dosage: UNK
     Dates: end: 2012
  7. LEVOTHYROXINE SODIUM [Interacting]
     Indication: HYPOTHYROIDISM
     Dosage: 0.75 mg, 1x/day
  8. PREVACID [Interacting]
     Indication: GASTRIC DISORDER
     Dosage: UNK
  9. FENTANYL [Interacting]
     Indication: PAIN
     Dosage: 75 ug, UNK
     Route: 062
     Dates: start: 2012
  10. OXYCONTIN [Interacting]
     Indication: PAIN
     Dosage: 30 mg, daily
  11. OXYCONTIN [Interacting]
     Dosage: 5 mg, 2x/day
  12. OXYCONTIN [Interacting]
     Dosage: 5 mg, Daily
  13. VALIUM [Interacting]
     Indication: ANXIETY
     Dosage: As needed
  14. ULTRAM [Interacting]
     Dosage: UNK

REACTIONS (16)
  - Drug ineffective [Unknown]
  - Drug interaction [Recovered/Resolved]
  - Blood pressure increased [Recovered/Resolved]
  - Chest pain [Recovered/Resolved]
  - Nausea [Recovered/Resolved]
  - Headache [Recovered/Resolved]
  - Decreased appetite [Recovered/Resolved]
  - Weight decreased [Recovered/Resolved]
  - Somnolence [Recovered/Resolved]
  - Asthenia [Recovered/Resolved]
  - Depressed mood [Recovered/Resolved]
  - Stress [Recovered/Resolved]
  - Abnormal behaviour [Recovered/Resolved]
  - Eye disorder [Recovered/Resolved]
  - Mental disorder [Recovered/Resolved]
  - Drug intolerance [Unknown]
